FAERS Safety Report 10787269 (Version 1)
Quarter: 2015Q1

REPORT INFORMATION
  Report Type: Report from Study
  Country: US (occurrence: US)
  Receive Date: 20150211
  Receipt Date: 20150211
  Transmission Date: 20150721
  Serious: No
  Sender: FDA-Public Use
  Company Number: US-009507513-1502USA004737

PATIENT
  Sex: Female

DRUGS (2)
  1. PRINIVIL [Suspect]
     Active Substance: LISINOPRIL
     Indication: CONGENITAL CYSTIC KIDNEY DISEASE
     Dosage: INITIAL DOSE WAS 2.5 MG/D.
     Route: 048
  2. PRAVASTATIN SODIUM. [Suspect]
     Active Substance: PRAVASTATIN SODIUM
     Indication: CONGENITAL CYSTIC KIDNEY DISEASE
     Dosage: 20 MG DAILY (8-12 YEARS) OR 40 MG DAILY (13-22 YEARS)

REACTIONS (1)
  - Exposure during pregnancy [Recovered/Resolved]
